FAERS Safety Report 25803028 (Version 1)
Quarter: 2025Q3

REPORT INFORMATION
  Report Type: Spontaneous
  Country: US (occurrence: US)
  Receive Date: 20250915
  Receipt Date: 20250915
  Transmission Date: 20251021
  Serious: No
  Sender: SAREPTA THERAPEUTICS
  Company Number: US-SAREPTA THERAPEUTICS INC.-SRP2024-005422

PATIENT
  Age: 16 Year
  Sex: Male
  Weight: 42.7 kg

DRUGS (3)
  1. VYONDYS 53 [Suspect]
     Active Substance: GOLODIRSEN
     Indication: Duchenne muscular dystrophy
     Route: 042
     Dates: start: 202012, end: 20241216
  2. VYONDYS 53 [Suspect]
     Active Substance: GOLODIRSEN
     Route: 042
     Dates: start: 20201230
  3. INFLUENZA VIRUS VACCINE [Suspect]
     Active Substance: INFLUENZA VIRUS VACCINE
     Indication: Influenza immunisation
     Dates: start: 20241218, end: 20241218

REACTIONS (1)
  - Influenza like illness [Recovered/Resolved]

NARRATIVE: CASE EVENT DATE: 20241220
